FAERS Safety Report 20334781 (Version 5)
Quarter: 2022Q3

REPORT INFORMATION
  Report Type: Spontaneous
  Country: JP (occurrence: JP)
  Receive Date: 20220114
  Receipt Date: 20220706
  Transmission Date: 20221027
  Serious: Yes (Other)
  Sender: FDA-Public Use
  Company Number: JP-ASTELLAS-2022JP000531

PATIENT
  Age: 76 Year
  Sex: Male

DRUGS (3)
  1. XOSPATA [Suspect]
     Active Substance: GILTERITINIB
     Indication: Product used for unknown indication
     Route: 048
  2. XOSPATA [Suspect]
     Active Substance: GILTERITINIB
     Route: 048
  3. XOSPATA [Suspect]
     Active Substance: GILTERITINIB
     Route: 048

REACTIONS (6)
  - Disease recurrence [Unknown]
  - Myelosuppression [Recovering/Resolving]
  - Renal impairment [Unknown]
  - Platelet count decreased [Recovering/Resolving]
  - Hepatic function abnormal [Unknown]
  - Myocardial infarction [Unknown]
